FAERS Safety Report 6314280-9 (Version None)
Quarter: 2009Q3

REPORT INFORMATION
  Report Type: 
  Country: None (occurrence: None)
  Receive Date: 20090817
  Receipt Date: 20090806
  Transmission Date: 20100115
  Serious: Yes (Hospitalization)
  Sender: FDA-Public Use
  Company Number: 20085903

PATIENT
  Age: 25 Year
  Sex: Male
  Weight: 86.2 kg

DRUGS (3)
  1. BACLOFEN [Suspect]
     Indication: MUSCLE SPASTICITY
     Dosage: 24-84.5 MCG, DAILY, INTRATHECAL
     Route: 037
     Dates: start: 20071003, end: 20080124
  2. ORAL BACLOFEN [Concomitant]
  3. POLLAKIS [Concomitant]

REACTIONS (10)
  - CATHETER RELATED COMPLICATION [None]
  - CONDITION AGGRAVATED [None]
  - CULTURE POSITIVE [None]
  - DRUG DELIVERY SYSTEM MALFUNCTION [None]
  - IMPLANT SITE EFFUSION [None]
  - MUSCLE SPASTICITY [None]
  - POLLAKIURIA [None]
  - PYREXIA [None]
  - STAPHYLOCOCCAL INFECTION [None]
  - URINARY INCONTINENCE [None]
